FAERS Safety Report 9689859 (Version 2)
Quarter: 2013Q4

REPORT INFORMATION
  Report Type: Report from Study
  Country: SE (occurrence: SE)
  Receive Date: 20131115
  Receipt Date: 20131125
  Transmission Date: 20140711
  Serious: Yes (Other)
  Sender: FDA-Public Use
  Company Number: SE-AMGEN-SWECT2013080396

PATIENT
  Age: 75 Year
  Sex: Male

DRUGS (2)
  1. ETANERCEPT [Suspect]
     Indication: RHEUMATOID ARTHRITIS
     Dosage: UNK
     Route: 065
     Dates: start: 20080421, end: 20130925
  2. METHOTREXATE [Concomitant]
     Dosage: UNK
     Dates: start: 20080421

REACTIONS (1)
  - Bladder cancer [Unknown]
